FAERS Safety Report 16633365 (Version 1)
Quarter: 2019Q3

REPORT INFORMATION
  Report Type: Spontaneous
  Country: TR (occurrence: TR)
  Receive Date: 20190725
  Receipt Date: 20190725
  Transmission Date: 20191004
  Serious: Yes (Hospitalization, Other)
  Sender: FDA-Public Use
  Company Number: PHHY2019TR171105

PATIENT
  Age: 13 Year
  Sex: Male

DRUGS (6)
  1. OMALIZUMAB. [Suspect]
     Active Substance: OMALIZUMAB
     Indication: ASTHMA
     Dosage: 300 MG, QMO
     Route: 058
     Dates: start: 200805
  2. BUDESONIDE. [Suspect]
     Active Substance: BUDESONIDE
     Dosage: 2000 UG, QD
     Route: 055
  3. BUDESONIDE. [Suspect]
     Active Substance: BUDESONIDE
     Indication: ASTHMA
     Dosage: 1000 UG, QD
     Route: 055
  4. BUDESONIDE. [Suspect]
     Active Substance: BUDESONIDE
     Dosage: 1000 UG, QD
     Route: 055
  5. FORMOTEROL [Suspect]
     Active Substance: FORMOTEROL
     Indication: ASTHMA
     Dosage: 2 DF, QD
     Route: 055
  6. MONTELUKAST SODIUM. [Suspect]
     Active Substance: MONTELUKAST SODIUM
     Indication: ASTHMA
     Dosage: 1 DF, QD
     Route: 048

REACTIONS (8)
  - Chest pain [Unknown]
  - Injection site pain [Unknown]
  - Pneumomediastinum [Unknown]
  - Asthma [Recovering/Resolving]
  - Quality of life decreased [Recovering/Resolving]
  - Dyspnoea [Recovering/Resolving]
  - Injection site swelling [Unknown]
  - Therapeutic response decreased [Unknown]
